FAERS Safety Report 9651926 (Version 3)
Quarter: 2014Q1

REPORT INFORMATION
  Report Type: Spontaneous
  Country: BR (occurrence: BR)
  Receive Date: 20131029
  Receipt Date: 20140207
  Transmission Date: 20141002
  Serious: Yes (Hospitalization, Other)
  Sender: FDA-Public Use
  Company Number: BR-ASTRAZENECA-2013SE78374

PATIENT
  Age: 80 Year
  Sex: Female
  Weight: 60 kg

DRUGS (13)
  1. ABLOK [Suspect]
     Indication: HYPERTENSION
     Route: 065
     Dates: start: 2012
  2. ABLOK [Suspect]
     Indication: ARRHYTHMIA
     Route: 065
     Dates: start: 2012
  3. ATACAND [Suspect]
     Indication: HYPERTENSION
     Route: 048
     Dates: start: 201304, end: 20131013
  4. ATACAND [Suspect]
     Indication: HYPERTENSION
     Route: 048
     Dates: start: 20131014
  5. NEXIUM [Suspect]
     Indication: GASTROOESOPHAGEAL REFLUX DISEASE
     Route: 048
     Dates: start: 2009
  6. NEXIUM [Suspect]
     Indication: GASTRIC DISORDER
     Route: 048
     Dates: start: 2009
  7. CRESTOR [Suspect]
     Indication: BLOOD CHOLESTEROL INCREASED
     Route: 048
     Dates: start: 201304
  8. SIMVASTATIN [Suspect]
     Indication: BLOOD CHOLESTEROL INCREASED
     Route: 065
     Dates: end: 201304
  9. ACTONEL [Concomitant]
     Dates: start: 2003
  10. MOTILIUM [Concomitant]
     Indication: GASTROOESOPHAGEAL REFLUX DISEASE
     Dates: start: 2011
  11. GLIFAGE XR [Concomitant]
     Indication: DIABETES MELLITUS MANAGEMENT
     Dates: start: 2008
  12. AROMASIN [Concomitant]
     Indication: BREAST CANCER
     Dates: start: 2012
  13. MANIVASC [Concomitant]
     Indication: HYPERTENSION
     Dates: start: 201309

REACTIONS (6)
  - Hypertension [Recovered/Resolved]
  - Breast cancer female [Unknown]
  - Arrhythmia [Recovered/Resolved]
  - Carotid arteriosclerosis [Unknown]
  - Gastrooesophageal reflux disease [Recovered/Resolved]
  - Drug ineffective [Unknown]
